FAERS Safety Report 9306119 (Version 1)
Quarter: 2013Q2

REPORT INFORMATION
  Report Type: Spontaneous
  Country: US (occurrence: US)
  Receive Date: 20130523
  Receipt Date: 20130523
  Transmission Date: 20140414
  Serious: Yes (Death)
  Sender: FDA-Public Use
  Company Number: US-ROXANE LABORATORIES, INC.-2013-RO-00816RO

PATIENT
  Age: 19 Year
  Sex: Male

DRUGS (2)
  1. AZATHIOPRINE [Suspect]
     Indication: COLITIS ULCERATIVE
  2. INFLIXIMAB [Suspect]
     Indication: COLITIS ULCERATIVE

REACTIONS (1)
  - Hepatosplenic T-cell lymphoma [Fatal]
